FAERS Safety Report 9431025 (Version 1)
Quarter: 2013Q3

REPORT INFORMATION
  Report Type: Report from Study
  Country: DE (occurrence: DE)
  Receive Date: 20130730
  Receipt Date: 20130730
  Transmission Date: 20140515
  Serious: Yes (Death)
  Sender: FDA-Public Use
  Company Number: DE-ABBOTT-13P-062-1125675-00

PATIENT
  Age: 81 Year
  Sex: Female
  Weight: 65 kg

DRUGS (7)
  1. HUMIRA [Suspect]
     Indication: RHEUMATOID ARTHRITIS
     Route: 058
     Dates: start: 20090216
  2. METHOTREXATE [Concomitant]
     Indication: RHEUMATOID ARTHRITIS
  3. PREDNISOLONE [Concomitant]
     Indication: RHEUMATOID ARTHRITIS
  4. ENALAPRIL [Concomitant]
     Indication: HYPERTENSION
  5. NEBILET [Concomitant]
     Indication: CORONARY ARTERY DISEASE
  6. SIMVASTATIN [Concomitant]
     Indication: HYPERLIPIDAEMIA
  7. OSPUR D3 [Concomitant]
     Indication: OSTEOPOROSIS

REACTIONS (1)
  - Death [Fatal]
